FAERS Safety Report 8035840-3 (Version None)
Quarter: 2012Q1

REPORT INFORMATION
  Report Type: 
  Country: None (occurrence: None)
  Receive Date: 20120111
  Receipt Date: 20120111
  Transmission Date: 20120608
  Serious: No
  Sender: FDA-Public Use
  Company Number: None

PATIENT
  Age: 32 Year
  Sex: Female

DRUGS (2)
  1. HUMIRA [Concomitant]
     Dosage: NOT PROVIDED
  2. METHOTREXATE [Suspect]
     Indication: RHEUMATOID ARTHRITIS
     Dosage: NOT PROVIDED

REACTIONS (4)
  - NAUSEA [None]
  - WEIGHT DECREASED [None]
  - ALOPECIA [None]
  - HYPOAESTHESIA [None]
